FAERS Safety Report 24574924 (Version 1)
Quarter: 2024Q4

REPORT INFORMATION
  Report Type: Spontaneous
  Country: JP (occurrence: JP)
  Receive Date: 20241104
  Receipt Date: 20241104
  Transmission Date: 20250115
  Serious: Yes (Other)
  Sender: MERCK
  Company Number: JP-MSD-2409JPN002619J

PATIENT
  Age: 73 Year
  Sex: Male
  Weight: 66 kg

DRUGS (4)
  1. BRIDION [Suspect]
     Active Substance: SUGAMMADEX
     Indication: Neuromuscular blockade reversal
     Dosage: 100 MILLIGRAM
     Route: 042
  2. REMIMAZOLAM BESYLATE [Concomitant]
     Active Substance: REMIMAZOLAM BESYLATE
     Indication: Maintenance of anaesthesia
     Dosage: UNK
     Route: 065
  3. REMIFENTANIL HYDROCHLORIDE [Concomitant]
     Active Substance: REMIFENTANIL HYDROCHLORIDE
     Indication: Maintenance of anaesthesia
     Dosage: UNK
     Route: 065
  4. FLUMAZENIL [Concomitant]
     Active Substance: FLUMAZENIL
     Indication: Neuromuscular blockade reversal
     Dosage: 0.4 MILLIGRAM
     Route: 065

REACTIONS (3)
  - Diplegia [Recovered/Resolved]
  - Spinal stenosis [Unknown]
  - Underdose [Unknown]
